FAERS Safety Report 7705584-3 (Version None)
Quarter: 2011Q3

REPORT INFORMATION
  Report Type: 
  Country: None (occurrence: None)
  Receive Date: 20110823
  Receipt Date: 20110823
  Transmission Date: 20111222
  Serious: No
  Sender: FDA-Public Use
  Company Number: None

PATIENT
  Age: 55 Year
  Sex: Male
  Weight: 104.3273 kg

DRUGS (2)
  1. DEXILANT [Suspect]
     Indication: COUGH
     Dosage: ONE CAPSULE ONCE DAILY PO
     Route: 048
     Dates: start: 20110728
  2. DEXILANT [Suspect]
     Indication: GASTROOESOPHAGEAL REFLUX DISEASE
     Dosage: ONE CAPSULE ONCE DAILY PO
     Route: 048
     Dates: start: 20110728

REACTIONS (1)
  - RASH [None]
